FAERS Safety Report 7118846-8 (Version None)
Quarter: 2010Q4

REPORT INFORMATION
  Report Type: 
  Country: None (occurrence: None)
  Receive Date: 20101123
  Receipt Date: 20100914
  Transmission Date: 20110411
  Serious: No
  Sender: FDA-Public Use
  Company Number: US-KINGPHARMUSA00001-K201001149

PATIENT
  Age: 63 Year
  Sex: Female
  Weight: 63.492 kg

DRUGS (3)
  1. FLECTOR [Suspect]
     Indication: BACK PAIN
     Dosage: 1 PATCH, QHS
     Route: 061
     Dates: start: 20100101, end: 20100101
  2. FLECTOR [Suspect]
     Indication: SWELLING
  3. ANALGESICS [Concomitant]
     Indication: PAIN

REACTIONS (2)
  - APPLICATION SITE HYPERSENSITIVITY [None]
  - APPLICATION SITE RASH [None]
